FAERS Safety Report 8788662 (Version 2)
Quarter: 2012Q4

REPORT INFORMATION
  Report Type: 
  Country: CN (occurrence: CN)
  Receive Date: 20120916
  Receipt Date: 20120916
  Transmission Date: 20130627
  Serious: Yes (Hospitalization)
  Sender: FDA-Public Use
  Company Number: PHHY2012CN078553

PATIENT
  Age: 72 Year
  Sex: Female

DRUGS (2)
  1. VOLTAREN SR [Suspect]
     Indication: ARTHRALGIA
     Dosage: 1 DF, per day
     Route: 048
     Dates: start: 2008
  2. DIOVAN [Concomitant]
     Indication: HYPERTENSION
     Dosage: 1 DF, per day
     Route: 048
     Dates: start: 201208

REACTIONS (4)
  - Spinal osteoarthritis [Unknown]
  - Headache [Unknown]
  - Pain in extremity [Recovering/Resolving]
  - Oedema peripheral [Recovering/Resolving]
